FAERS Safety Report 7495450-3 (Version None)
Quarter: 2011Q2

REPORT INFORMATION
  Report Type: 
  Country: None (occurrence: None)
  Receive Date: 20110523
  Receipt Date: 20110428
  Transmission Date: 20111010
  Serious: No
  Sender: FDA-Public Use
  Company Number: US-TYCO HEALTHCARE/MALLINCKRODT-T201100855

PATIENT
  Sex: Male

DRUGS (9)
  1. PROTONIX [Concomitant]
     Indication: GASTROOESOPHAGEAL REFLUX DISEASE
  2. FENTANYL [Concomitant]
     Dosage: 50 UG/HR EVERY 48 HOURS
     Dates: start: 20030101, end: 20110322
  3. FENTANYL-100 [Suspect]
     Indication: NECK PAIN
  4. ZOCOR [Concomitant]
     Indication: BLOOD CHOLESTEROL INCREASED
  5. UROXATRAL [Concomitant]
     Indication: PROSTATOMEGALY
  6. VESICARE [Concomitant]
     Indication: URINARY INCONTINENCE
  7. METOPROLOL SUCCINATE [Concomitant]
     Indication: HYPERTENSION
  8. FENTANYL-100 [Suspect]
     Indication: BACK PAIN
     Dosage: 50 UG/HR, Q48HRS
     Route: 062
     Dates: start: 20110323
  9. FENTANYL-100 [Suspect]
     Indication: MUSCULOSKELETAL PAIN

REACTIONS (2)
  - DRUG EFFECT DECREASED [None]
  - DRUG INEFFECTIVE [None]
